FAERS Safety Report 6277581-9 (Version None)
Quarter: 2009Q3

REPORT INFORMATION
  Report Type: 
  Country: None (occurrence: None)
  Receive Date: 20090722
  Receipt Date: 20090430
  Transmission Date: 20100115
  Serious: No
  Sender: FDA-Public Use
  Company Number: US-BAYER-200919649NA

PATIENT
  Age: 29 Year
  Sex: Female
  Weight: 93 kg

DRUGS (1)
  1. MIRENA [Suspect]
     Indication: CONTRACEPTION
     Dosage: CONTINUOUS
     Route: 015
     Dates: start: 20080424, end: 20090211

REACTIONS (4)
  - ACNE [None]
  - BACK PAIN [None]
  - HYPERTRICHOSIS [None]
  - WEIGHT INCREASED [None]
